FAERS Safety Report 9278578 (Version 1)
Quarter: 2013Q2

REPORT INFORMATION
  Report Type: Report from Study
  Country: MX (occurrence: MX)
  Receive Date: 20130508
  Receipt Date: 20130508
  Transmission Date: 20140414
  Serious: Yes (Death)
  Sender: FDA-Public Use
  Company Number: PHHY2013MX045612

PATIENT
  Age: 61 Year
  Sex: Female

DRUGS (6)
  1. CO-DIOVAN [Suspect]
     Indication: HYPERTENSION
     Dosage: 1 DF (320MG VALS/25MG HCTZ), DAILY
     Route: 048
     Dates: start: 200702
  2. LANOXIN [Concomitant]
  3. LASILACTONE [Concomitant]
     Dosage: UNK UKN, UNK
     Dates: end: 201304
  4. IMDUR [Concomitant]
     Dosage: UNK UKN, UNK
     Dates: end: 201304
  5. INSULIN [Concomitant]
     Dosage: UNK UKN, UNK
     Dates: end: 201304
  6. HUMALOG [Concomitant]
     Dosage: UNK UKN, UNK
     Dates: end: 201304

REACTIONS (1)
  - Death [Fatal]
